FAERS Safety Report 10267364 (Version 1)
Quarter: 2014Q2

REPORT INFORMATION
  Report Type: Spontaneous
  Country: US (occurrence: None)
  Receive Date: 20140626
  Receipt Date: 20140626
  Transmission Date: 20141212
  Serious: Yes (Disabling)
  Sender: FDA-Public Use
  Company Number: None

PATIENT
  Age: 58 Year
  Sex: Female
  Weight: 71.67 kg

DRUGS (1)
  1. ENBREL 50 MG/ML AMGEN [Suspect]
     Indication: PSORIATIC ARTHROPATHY
     Dosage: 50 MG. WEEKLY GIVEN INTO/UNDER THE SKIN
     Dates: start: 20140131, end: 20140618

REACTIONS (3)
  - Pseudomonas infection [None]
  - Diarrhoea [None]
  - Culture stool positive [None]
